FAERS Safety Report 8899772 (Version 1)
Quarter: 2012Q4

REPORT INFORMATION
  Report Type: 
  Country: US (occurrence: US)
  Receive Date: 20121108
  Receipt Date: 20121108
  Transmission Date: 20130627
  Serious: No
  Sender: FDA-Public Use
  Company Number: US-AMGEN-USASP2012036277

PATIENT
  Age: 65 Year
  Sex: Female

DRUGS (4)
  1. ENBREL [Suspect]
     Indication: RHEUMATOID ARTHRITIS
     Dosage: 50 mg, qwk
     Dates: start: 20120607
  2. METHOTREXATE [Concomitant]
     Dosage: UNK
  3. ZOCOR [Concomitant]
     Dosage: 1 mg, qd
  4. FOLIC ACID [Concomitant]
     Dosage: UNK

REACTIONS (1)
  - Injection site bruising [Unknown]
